FAERS Safety Report 15600969 (Version 1)
Quarter: 2018Q4

REPORT INFORMATION
  Report Type: Spontaneous
  Country: US (occurrence: US)
  Receive Date: 20181109
  Receipt Date: 20181109
  Transmission Date: 20190205
  Serious: Yes (Hospitalization)
  Sender: FDA-Public Use
  Company Number: US-TEVA-2018-US-973671

PATIENT
  Age: 36 Year
  Sex: Male
  Weight: 77.18 kg

DRUGS (3)
  1. DILTIAZEM 360 MG EXTENDED-RELEASE CAPSULES [Suspect]
     Active Substance: DILTIAZEM
     Dosage: 360 MILLIGRAM DAILY;
     Route: 048
     Dates: start: 20181022
  2. DILTIAZEM 360 MG EXTENDED-RELEASE CAPSULES [Suspect]
     Active Substance: DILTIAZEM
     Indication: HYPERTENSION
     Dosage: 360 MILLIGRAM DAILY;
     Route: 048
     Dates: start: 201711
  3. DILTIAZEM 360 MG EXTENDED-RELEASE CAPSULES [Suspect]
     Active Substance: DILTIAZEM
     Dosage: 360 MILLIGRAM DAILY;
     Route: 048
     Dates: start: 201803

REACTIONS (4)
  - Allergic reaction to excipient [Not Recovered/Not Resolved]
  - Diarrhoea [Not Recovered/Not Resolved]
  - Abdominal pain upper [Not Recovered/Not Resolved]
  - Malaise [Recovered/Resolved]

NARRATIVE: CASE EVENT DATE: 201803
